FAERS Safety Report 6237958-4 (Version None)
Quarter: 2009Q2

REPORT INFORMATION
  Report Type: 
  Country: None (occurrence: None)
  Receive Date: 20090617
  Receipt Date: 20090617
  Transmission Date: 20091009
  Serious: Yes (Other)
  Sender: FDA-Public Use
  Company Number: None

PATIENT
  Sex: Female
  Weight: 125.5 kg

DRUGS (2)
  1. TOPIRAMATE [Suspect]
     Indication: COMPLEX PARTIAL SEIZURES
     Dosage: 200MG, 400MG IN AM INPM ORAL
     Route: 048
     Dates: start: 20090508
  2. TOPIRAMATE [Suspect]
     Indication: MENTAL RETARDATION
     Dosage: 200MG, 400MG IN AM INPM ORAL
     Route: 048
     Dates: start: 20090508

REACTIONS (1)
  - COMPLEX PARTIAL SEIZURES [None]
